FAERS Safety Report 8379860-8 (Version None)
Quarter: 2012Q2

REPORT INFORMATION
  Report Type: 
  Country: None (occurrence: None)
  Receive Date: 20120523
  Receipt Date: 20120517
  Transmission Date: 20120825
  Serious: Yes (Hospitalization)
  Sender: FDA-Public Use
  Company Number: BR-PFIZER INC-2012121186

PATIENT
  Age: 50 Year
  Sex: Female

DRUGS (5)
  1. DIPYRONE TAB [Concomitant]
     Indication: PAIN
     Dosage: UNK
     Dates: start: 20080101
  2. LYRICA [Suspect]
     Indication: NECK PAIN
  3. PONDERA [Concomitant]
     Indication: DEPRESSION
     Dosage: UNK
     Dates: start: 20080101
  4. TRAMADOL HYDROCHLORIDE [Concomitant]
     Indication: PAIN
     Dosage: UNK
     Dates: start: 20080101, end: 20120417
  5. LYRICA [Suspect]
     Indication: BACK PAIN
     Dosage: 75 MG (ONE CAPSULE), 2X/DAY
     Route: 048
     Dates: start: 20080101

REACTIONS (1)
  - SPINAL DISORDER [None]
